FAERS Safety Report 6209489 (Version 7)
Quarter: 2014Q1

REPORT INFORMATION
  Report Type: Report from Study
  Country: US (occurrence: US)
  Receive Date: 20061124
  Receipt Date: 20140310
  Transmission Date: 20141002
  Serious: Yes (Other)
  Sender: FDA-Public Use
  Company Number: US-PFIZER INC-2006135479

PATIENT
  Age: 74 Year
  Sex: Female
  Weight: 70.3 kg

DRUGS (3)
  1. CELEBREX [Suspect]
     Indication: ARTHRALGIA
     Dosage: 200 MG
     Route: 048
     Dates: start: 2006, end: 20061027
  2. VALIUM [Concomitant]
     Dosage: 5 MG, 2X/DAY
     Route: 048
  3. PROTONIX [Concomitant]
     Dosage: 40 MG
     Route: 048

REACTIONS (7)
  - Loss of consciousness [Recovered/Resolved]
  - Swelling face [Recovered/Resolved]
  - Urticaria [Recovered/Resolved]
  - Local swelling [Recovered/Resolved]
  - Vision blurred [Recovered/Resolved]
  - Rash erythematous [Recovered/Resolved]
  - Drug hypersensitivity [Unknown]
